FAERS Safety Report 21241541 (Version 1)
Quarter: 2022Q3

REPORT INFORMATION
  Report Type: Spontaneous
  Country: FR (occurrence: FR)
  Receive Date: 20220823
  Receipt Date: 20220823
  Transmission Date: 20221026
  Serious: Yes (Hospitalization)
  Sender: FDA-Public Use
  Company Number: None

PATIENT
  Age: 48 Year
  Sex: Female

DRUGS (8)
  1. PREDNISONE [Suspect]
     Active Substance: PREDNISONE
     Indication: Systemic lupus erythematosus
     Dosage: 15 MILLIGRAM DAILY;
     Route: 065
     Dates: start: 20211105, end: 20211107
  2. PREDNISOLONE [Suspect]
     Active Substance: PREDNISOLONE
     Indication: Product used for unknown indication
     Route: 065
     Dates: start: 20211105, end: 20211107
  3. CLOPIDOGREL HYDROCHLORIDE [Suspect]
     Active Substance: CLOPIDOGREL HYDROCHLORIDE
     Indication: Systemic lupus erythematosus
     Route: 065
     Dates: start: 20211105, end: 20211107
  4. METHOTREXATE [Suspect]
     Active Substance: METHOTREXATE
     Indication: Systemic lupus erythematosus
     Dosage: 15 MG SC 1 PER WEEK
     Route: 065
     Dates: start: 20211105, end: 20211107
  5. PLAQUENIL [Suspect]
     Active Substance: HYDROXYCHLOROQUINE SULFATE
     Indication: Systemic lupus erythematosus
     Dosage: 800 MILLIGRAM DAILY; 200 MG X 2 MORNING AND EVENING , DURATION : 2DAYS
     Route: 065
     Dates: start: 20211105, end: 20211107
  6. KARDEGIC [Suspect]
     Active Substance: ASPIRIN DL-LYSINE
     Indication: Systemic lupus erythematosus
     Dosage: 75 MILLIGRAM DAILY; 75 MG AT NOON , DURATION : 2 DAYS
     Route: 065
     Dates: start: 20211105, end: 20211107
  7. DEXAMETHASONE [Suspect]
     Active Substance: DEXAMETHASONE
     Indication: Systemic lupus erythematosus
     Dosage: UNIT DOSE : 1 DOSAGE FORM, DURATION : 2 DAYS
     Route: 065
     Dates: start: 20211105, end: 20211107
  8. CHLOROQUINE [Suspect]
     Active Substance: CHLOROQUINE
     Indication: Systemic lupus erythematosus
     Route: 065
     Dates: start: 20211105, end: 20211107

REACTIONS (1)
  - Rash maculo-papular [Recovered/Resolved]

NARRATIVE: CASE EVENT DATE: 20211106
